FAERS Safety Report 16059084 (Version 1)
Quarter: 2019Q1

REPORT INFORMATION
  Report Type: Spontaneous
  Country: CO (occurrence: CO)
  Receive Date: 20190311
  Receipt Date: 20190311
  Transmission Date: 20190418
  Serious: Yes (Death, Hospitalization)
  Sender: FDA-Public Use
  Company Number: CO-CELGENEUS-COL-20190302501

PATIENT
  Age: 34 Year
  Sex: Female

DRUGS (1)
  1. ABRAXANE [Suspect]
     Active Substance: PACLITAXEL
     Indication: BREAST CANCER
     Dosage: 100 MILLIGRAM
     Route: 041
     Dates: start: 20190105, end: 20190128

REACTIONS (4)
  - Device related infection [Unknown]
  - Pyrexia [Unknown]
  - Haemorrhage [Unknown]
  - Death [Fatal]

NARRATIVE: CASE EVENT DATE: 201901
